FAERS Safety Report 5924606-3 (Version None)
Quarter: 2008Q3

REPORT INFORMATION
  Report Type: 
  Country: None (occurrence: None)
  Receive Date: 20080909
  Receipt Date: 20080221
  Transmission Date: 20090109
  Serious: Yes (Hospitalization)
  Sender: FDA-Public Use
  Company Number: 163-20785-08021392

PATIENT
  Age: 52 Year
  Sex: Male
  Weight: 129 kg

DRUGS (25)
  1. THALOMID [Suspect]
     Indication: MULTIPLE MYELOMA
     Dosage: 50 MG, 1 IN 2 D, ORAL
     Route: 048
     Dates: end: 20080118
  2. DEXAMETHASONE TAB [Suspect]
     Indication: MULTIPLE MYELOMA
     Dosage: 12 MG, DAILY FOR 4 DAYS EVERY 28 DAYS, ORAL
     Route: 048
     Dates: end: 20071206
  3. MYCELEX [Concomitant]
  4. IMDUR [Concomitant]
  5. ACYCLOVIR (ACICLOVIR) (TABLETS) [Concomitant]
  6. BACTRIM DS [Concomitant]
  7. EFFEXOR XR (TABLETS) [Concomitant]
  8. ELAVIL (AMITRIPTYLINE HYDROCHLORIDE) (TABLETS) [Concomitant]
  9. ACCUPRIL (QUINAPRIL HYDROCHLORIDE) (TABLETS) [Concomitant]
  10. FOLIC ACID [Concomitant]
  11. OXYCONTIN (OXYCODONE HYDROCHLORIDE) (TABLETS) [Concomitant]
  12. OXYCODONE HCL [Concomitant]
  13. MULTIVITAMINS (MULTIVITAMINS) (CAPSULES) [Concomitant]
  14. MAGNESIUM (MAGNESIUM) (CAPSULES) [Concomitant]
  15. NOVOLIN 70/30 (HUMAN MIXTARD) [Concomitant]
  16. GLUCOPHAGE [Concomitant]
  17. REGULAR INSULIN [Concomitant]
  18. LOPRESSOR [Concomitant]
  19. NITROSTAT [Concomitant]
  20. ANTIVERT [Concomitant]
  21. AREDIA [Concomitant]
  22. PROCRIT [Concomitant]
  23. VALIUM [Concomitant]
  24. ASPIRIN [Concomitant]
  25. PRILOSEC [Concomitant]

REACTIONS (1)
  - MYOCARDIAL ISCHAEMIA [None]
